FAERS Safety Report 7657874 (Version 3)
Quarter: 2012Q4

REPORT INFORMATION
  Report Type: 
  Country: US (occurrence: US)
  Receive Date: 20101105
  Receipt Date: 20121213
  Transmission Date: 20130627
  Serious: Yes (Death, Hospitalization, Other)
  Sender: FDA-Public Use
  Company Number: US-BAYER-201038899NA

PATIENT
  Age: 71 Year
  Sex: Female
  Weight: 77.1 kg

DRUGS (16)
  1. TRASYLOL [Suspect]
     Indication: CORONARY ARTERY BYPASS GRAFT
     Dosage: Test dose: 1mL
     Route: 042
     Dates: start: 20030829, end: 20030829
  2. TRASYLOL [Suspect]
     Indication: CORONARY ARTERY BYPASS GRAFT
     Dosage: Loading dose: 200mL pump prime followed by 65cc/hr maintaince drip
     Dates: start: 20030829, end: 20030829
  3. ACETYLSALICYLIC ACID (} 100 MG) [Concomitant]
  4. TENORMIN [Concomitant]
     Dosage: daily
  5. METFORMIN [Concomitant]
     Dosage: daily
  6. NITROQUICK [Concomitant]
     Dosage: as needed
  7. ISOSORBIDE [Concomitant]
     Dosage: daily
  8. PRAVACHOL [Concomitant]
     Dosage: daily
  9. NORVASC [Concomitant]
     Dosage: daily
  10. MAVIK [Concomitant]
  11. FISH OIL [Concomitant]
  12. HEPARIN [Concomitant]
     Dosage: UNK
     Route: 042
     Dates: start: 20030829, end: 20030829
  13. PROTAMINE [Concomitant]
     Dosage: 310
     Route: 042
     Dates: start: 20030829, end: 20030829
  14. PAVULON [Concomitant]
     Dosage: UNK
     Route: 042
     Dates: start: 20030829, end: 20030829
  15. SCOPOLAMINE [Concomitant]
     Dosage: UNK
     Route: 042
     Dates: start: 20030829, end: 20030829
  16. DOPAMINE [Concomitant]

REACTIONS (15)
  - Circulatory collapse [Fatal]
  - Disseminated intravascular coagulation [Fatal]
  - Coronary artery bypass [Fatal]
  - Multi-organ failure [Unknown]
  - Renal failure [Unknown]
  - Renal impairment [Unknown]
  - Renal injury [Unknown]
  - Emotional distress [Unknown]
  - Stress [Unknown]
  - Anxiety [Unknown]
  - Unevaluable event [Unknown]
  - Fear [Unknown]
  - Pain [Unknown]
  - Anxiety [Unknown]
  - Injury [Unknown]
